FAERS Safety Report 19013844 (Version 1)
Quarter: 2021Q1

REPORT INFORMATION
  Report Type: Spontaneous
  Country: US (occurrence: US)
  Receive Date: 20210316
  Receipt Date: 20210316
  Transmission Date: 20210420
  Serious: Yes (Other)
  Sender: FDA-Public Use
  Company Number: US-ADIENNEP-2021AD000160

PATIENT
  Age: 16 Year
  Sex: Male

DRUGS (6)
  1. HYDROXYUREA. [Suspect]
     Active Substance: HYDROXYUREA
     Indication: ALLOGENIC STEM CELL TRANSPLANTATION
  2. FLUDARABINE [Suspect]
     Active Substance: FLUDARABINE PHOSPHATE
     Indication: ALLOGENIC STEM CELL TRANSPLANTATION
  3. RITUXIMAB. [Suspect]
     Active Substance: RITUXIMAB
     Indication: ALLOGENIC STEM CELL TRANSPLANTATION
  4. ALEMTUZUMAB [Suspect]
     Active Substance: ALEMTUZUMAB
     Indication: ALLOGENIC STEM CELL TRANSPLANTATION
  5. TACRILOMUS [Concomitant]
  6. THIOTEPA. [Suspect]
     Active Substance: THIOTEPA
     Indication: ALLOGENIC STEM CELL TRANSPLANTATION

REACTIONS (2)
  - Graft versus host disease in gastrointestinal tract [Recovered/Resolved]
  - Adenovirus infection [Recovered/Resolved]
